FAERS Safety Report 10222849 (Version 1)
Quarter: 2014Q2

REPORT INFORMATION
  Report Type: Spontaneous
  Country: US (occurrence: US)
  Receive Date: 20140607
  Receipt Date: 20140607
  Transmission Date: 20141212
  Serious: Yes (Other)
  Sender: FDA-Public Use
  Company Number: US-ELI_LILLY_AND_COMPANY-US201405009362

PATIENT
  Sex: Female

DRUGS (4)
  1. INSULIN HUMAN [Suspect]
     Indication: TYPE 1 DIABETES MELLITUS
     Dosage: UNK
     Route: 065
     Dates: start: 1994
  2. HUMULIN NPH [Suspect]
     Indication: TYPE 1 DIABETES MELLITUS
     Dosage: UNK, PRN
     Route: 065
     Dates: start: 1994
  3. LISINOPRIL [Concomitant]
  4. CELEBREX [Concomitant]
     Route: 065

REACTIONS (9)
  - Loss of consciousness [Unknown]
  - Fall [Unknown]
  - Hypoglycaemic unconsciousness [Unknown]
  - Blood glucose decreased [Unknown]
  - Pain in extremity [Unknown]
  - Feeling drunk [Unknown]
  - Belligerence [Unknown]
  - Dysarthria [Unknown]
  - Hyperhidrosis [Unknown]
